FAERS Safety Report 25050326 (Version 1)
Quarter: 2025Q1

REPORT INFORMATION
  Report Type: Spontaneous
  Country: US (occurrence: None)
  Receive Date: 20250306
  Receipt Date: 20250306
  Transmission Date: 20250408
  Serious: Yes (Death)
  Sender: FDA-CTU
  Company Number: None

PATIENT
  Age: 43 Year
  Sex: Male

DRUGS (4)
  1. MYCOPHENOLIC ACID [Suspect]
     Active Substance: MYCOPHENOLIC ACID
     Indication: Renal transplant
     Dosage: 1000 MG TWICE A DAY ORAL ?
     Route: 048
     Dates: start: 20240428, end: 20250304
  2. PREDNISONE [Concomitant]
     Active Substance: PREDNISONE
     Dates: start: 20240428, end: 20250304
  3. TACROLIMUS [Concomitant]
     Active Substance: TACROLIMUS
     Dates: start: 20240428, end: 20250304
  4. Nifedipine 30 mg XL [Concomitant]
     Dates: start: 20240430, end: 20250304

REACTIONS (1)
  - Death [None]

NARRATIVE: CASE EVENT DATE: 20250304
